FAERS Safety Report 23926526 (Version 1)
Quarter: 2024Q2

REPORT INFORMATION
  Report Type: Spontaneous
  Country: US (occurrence: None)
  Receive Date: 20240531
  Receipt Date: 20240531
  Transmission Date: 20240716
  Serious: Yes (Other)
  Sender: FDA-Public Use
  Company Number: None

PATIENT
  Age: 74 Year
  Weight: 49.5 kg

DRUGS (8)
  1. DURYSTA [Suspect]
     Active Substance: BIMATOPROST
     Indication: Glaucoma
     Dosage: 1 INJECTION?INJECTION OF DURYSTA  Y OPHTHALMOLOGIST ?
     Route: 050
  2. VITAMINS [Concomitant]
     Active Substance: VITAMINS
  3. VITAMIN D [Concomitant]
     Active Substance: VITAMIN D NOS
  4. VITAMIN C [Concomitant]
     Active Substance: ASCORBIC ACID
  5. VITAMIN B12 [Concomitant]
     Active Substance: CYANOCOBALAMIN
  6. MAGNESIUM [Concomitant]
     Active Substance: MAGNESIUM
  7. BIOTIN [Concomitant]
     Active Substance: BIOTIN
  8. RETAINE EYE DROP [Concomitant]

REACTIONS (8)
  - Dry eye [None]
  - Lacrimation increased [None]
  - Eye irritation [None]
  - Rhinorrhoea [None]
  - Photophobia [None]
  - Impaired driving ability [None]
  - Quality of life decreased [None]
  - Eye irritation [None]

NARRATIVE: CASE EVENT DATE: 20230911
